FAERS Safety Report 20162242 (Version 2)
Quarter: 2021Q4

REPORT INFORMATION
  Report Type: Spontaneous
  Country: AT (occurrence: AT)
  Receive Date: 20211208
  Receipt Date: 20211210
  Transmission Date: 20220303
  Serious: Yes (Other)
  Sender: FDA-Public Use
  Company Number: AT-MLMSERVICE-20211123-3214145-2

PATIENT
  Age: 52 Year
  Sex: Male

DRUGS (2)
  1. METHOTREXATE SODIUM [Suspect]
     Active Substance: METHOTREXATE SODIUM
     Indication: Psoriasis
     Dosage: 15 MG
     Route: 058
  2. METHOTREXATE SODIUM [Suspect]
     Active Substance: METHOTREXATE SODIUM
     Indication: Psoriatic arthropathy

REACTIONS (6)
  - Epidermal necrosis [Recovering/Resolving]
  - Erythema annulare [Recovering/Resolving]
  - Injection site reaction [Recovering/Resolving]
  - Lichenoid keratosis [Recovering/Resolving]
  - Off label use [Unknown]
  - Product use issue [Unknown]
